FAERS Safety Report 8566339 (Version 2)
Quarter: 2013Q4

REPORT INFORMATION
  Report Type: Spontaneous
  Country: US (occurrence: US)
  Receive Date: 20120517
  Receipt Date: 20131101
  Transmission Date: 20140711
  Serious: Yes (Other)
  Sender: FDA-Public Use
  Company Number: PHEH2012US004568

PATIENT
  Sex: Male

DRUGS (17)
  1. SANDIMMUNE [Suspect]
     Indication: RENAL TRANSPLANT
     Dosage: 100 MG, BID
     Route: 048
     Dates: start: 20120112
  2. SANDIMMUNE [Suspect]
     Dosage: 25 MG, BID
     Route: 048
  3. PREDNISONE [Concomitant]
     Indication: HYPERSENSITIVITY
     Dosage: 40 MG, UNK
  4. ALLOPURINOL [Concomitant]
     Indication: GOUT
     Dosage: 100 MG, QD
  5. BABY ASPIRIN [Concomitant]
     Indication: CARDIAC DISORDER
     Dosage: 81 MG, QD
     Route: 048
  6. NOVOLIN [Concomitant]
     Indication: DIABETES MELLITUS
  7. NOVOLOG [Concomitant]
     Indication: DIABETES MELLITUS
     Dosage: 10 U, UNK
  8. COSOPT [Concomitant]
     Indication: INTRAOCULAR PRESSURE TEST
  9. DILTIAZEM HYDROCHLORIDE [Concomitant]
     Indication: CARDIAC DISORDER
  10. VITAMIN D [Concomitant]
     Dosage: 5000 U, UNK
     Route: 048
  11. FOLIC ACID [Concomitant]
     Dosage: 1 MG, QD
     Route: 048
  12. FUROSEMIDE [Concomitant]
     Dosage: 40 MG, QD
     Route: 048
  13. ISOSORBIDE MONONITRATE [Concomitant]
     Indication: CARDIAC DISORDER
     Route: 048
  14. LUMIGAN [Concomitant]
  15. NITROGLICERINA [Concomitant]
     Indication: ANGINA PECTORIS
     Dosage: 0.4 MG, PRN
  16. ONDANSETRON [Concomitant]
     Indication: NAUSEA
     Dosage: 8 MG, UNK
  17. PROCHLORPERAZINE MALEATE [Concomitant]
     Indication: NAUSEA
     Dosage: 10 MG, PRN

REACTIONS (5)
  - Hypoacusis [Unknown]
  - Skin cancer [Unknown]
  - Melanocytic naevus [Unknown]
  - Mesothelioma malignant [Unknown]
  - Lung disorder [Unknown]
